FAERS Safety Report 9998035 (Version 1)
Quarter: 2014Q1

REPORT INFORMATION
  Report Type: Spontaneous
  Country: US (occurrence: None)
  Receive Date: 20140304
  Receipt Date: 20140304
  Transmission Date: 20141002
  Serious: Yes (Hospitalization, Other)
  Sender: FDA-Public Use
  Company Number: RB-60852-2013

PATIENT
  Sex: Male

DRUGS (4)
  1. SUBOXONE 8 MG [Suspect]
     Indication: DRUG DEPENDENCE
     Dosage: (16 MG, SUBOXONE FILM TRANSPLACENTAL)?
     Dates: start: 2012, end: 2012
  2. BUPRENORPHINE 8 MG [Suspect]
     Indication: DRUG DEPENDENCE
     Dates: start: 2012
  3. NICOTINE [Suspect]
     Indication: NICOTINE DEPENDENCE
     Dosage: (10 CIGARETTE DAILY TRANSPLACENTAL)?
     Dates: start: 2012, end: 20130209
  4. OPIOIDS [Suspect]
     Dosage: REGIMEN UNKNOWN TRANSPLACENTAL)
     Dates: start: 2012, end: 2012

REACTIONS (2)
  - Foetal exposure during pregnancy [None]
  - Drug withdrawal syndrome neonatal [None]
